FAERS Safety Report 4307410-1 (Version None)
Quarter: 2004Q1

REPORT INFORMATION
  Report Type: 
  Country: None (occurrence: None)
  Receive Date: 20040226
  Receipt Date: 20040213
  Transmission Date: 20041129
  Serious: Yes (Disabling)
  Sender: FDA-Public Use
  Company Number: 2003110778

PATIENT
  Age: 66 Year
  Sex: Male
  Weight: 52.5 kg

DRUGS (5)
  1. CARDENALIN (DOXAZOSIN) [Suspect]
     Indication: HYPERTENSION
     Dosage: 1 MG, DAILY, ORAL
     Route: 048
     Dates: start: 20030826, end: 20030913
  2. PAROXETINE HCL [Concomitant]
  3. ETIZOLAM (ETIZOLAM) [Concomitant]
  4. TRIAZOLAM [Concomitant]
  5. APLRAZOLAM (ALPRAZOLAM) [Concomitant]

REACTIONS (9)
  - DIZZINESS [None]
  - FALL [None]
  - JAW FRACTURE [None]
  - JOINT DISLOCATION [None]
  - LACERATION [None]
  - ORTHOSTATIC HYPOTENSION [None]
  - SYNCOPE [None]
  - TOOTH DISORDER [None]
  - TRISMUS [None]
